FAERS Safety Report 11055227 (Version 1)
Quarter: 2015Q2

REPORT INFORMATION
  Report Type: Spontaneous
  Country: US (occurrence: US)
  Receive Date: 20150422
  Receipt Date: 20150422
  Transmission Date: 20150821
  Serious: No
  Sender: FDA-Public Use
  Company Number: US-SA-2015SA041873

PATIENT
  Age: 35 Year
  Sex: Female

DRUGS (1)
  1. ENOXAPARIN SODIUM - WINTHROP [Suspect]
     Active Substance: ENOXAPARIN SODIUM
     Indication: PULMONARY EMBOLISM
     Dosage: MAY BE 75 MG DAILY?SAME DOSE, TWICE DAILY,
     Route: 065
     Dates: start: 201403, end: 201411

REACTIONS (3)
  - Contusion [Recovered/Resolved]
  - Skin induration [Recovered/Resolved]
  - Swelling [Recovered/Resolved]
